FAERS Safety Report 5057867-6 (Version None)
Quarter: 2006Q3

REPORT INFORMATION
  Report Type: 
  Country: None (occurrence: None)
  Receive Date: 20060721
  Receipt Date: 20060320
  Transmission Date: 20061208
  Serious: No
  Sender: FDA-Public Use
  Company Number: US-GLAXOSMITHKLINE-A0598204A

PATIENT
  Age: 53 Year
  Sex: Male
  Weight: 77.3 kg

DRUGS (5)
  1. AVANDIA [Suspect]
     Dosage: 4MG TWICE PER DAY
     Route: 048
     Dates: start: 20060101
  2. METFORMIN [Suspect]
     Dosage: 1000MG TWICE PER DAY
     Route: 048
     Dates: start: 20060101
  3. LISINOPRIL [Concomitant]
  4. NEXIUM [Concomitant]
  5. HYDROCODONE [Concomitant]

REACTIONS (2)
  - ABDOMINAL DISTENSION [None]
  - STOMACH DISCOMFORT [None]
